FAERS Safety Report 8125866-3 (Version None)
Quarter: 2012Q1

REPORT INFORMATION
  Report Type: 
  Country: None (occurrence: None)
  Receive Date: 20120206
  Receipt Date: 20120123
  Transmission Date: 20120608
  Serious: Yes (Other)
  Sender: FDA-Public Use
  Company Number: 2012AP000207

PATIENT
  Sex: Female

DRUGS (2)
  1. AZITHROMYCIN [Suspect]
     Indication: PRODUCT USED FOR UNKNOWN INDICATION
     Dosage: ;PO
     Route: 048
  2. AZITHROMYCIN [Concomitant]

REACTIONS (7)
  - LIP SWELLING [None]
  - COUGH [None]
  - ODYNOPHAGIA [None]
  - PHARYNGEAL OEDEMA [None]
  - PAIN [None]
  - HYPERSENSITIVITY [None]
  - EAR PAIN [None]
